FAERS Safety Report 9654703 (Version 1)
Quarter: 2013Q4

REPORT INFORMATION
  Report Type: Spontaneous
  Country: US (occurrence: US)
  Receive Date: 20131029
  Receipt Date: 20131029
  Transmission Date: 20140711
  Serious: Yes (Other)
  Sender: FDA-Public Use
  Company Number: US-BRISTOL-MYERS SQUIBB COMPANY-19610328

PATIENT
  Age: 78 Year
  Sex: Female
  Weight: 49.89 kg

DRUGS (2)
  1. PRAVACHOL [Suspect]
     Indication: BLOOD CHOLESTEROL INCREASED
  2. PRAVACHOL TABS 40 MG [Suspect]
     Indication: BLOOD TRIGLYCERIDES INCREASED

REACTIONS (4)
  - Renal failure [Unknown]
  - Coronary artery disease [Unknown]
  - Muscular weakness [Unknown]
  - Weight decreased [Unknown]
